FAERS Safety Report 15550819 (Version 1)
Quarter: 2018Q4

REPORT INFORMATION
  Report Type: Spontaneous
  Country: US (occurrence: US)
  Receive Date: 20181019
  Receipt Date: 20181019
  Transmission Date: 20190205
  Serious: Yes (Other)
  Sender: FDA-Public Use
  Company Number: None

PATIENT
  Age: 79 Year
  Sex: Female
  Weight: 91.4 kg

DRUGS (7)
  1. ASA [Concomitant]
     Active Substance: ASPIRIN
  2. PALBOBCICLIB 100MG [Suspect]
     Active Substance: PALBOCICLIB
     Indication: BREAST CANCER METASTATIC
     Dosage: ?          QUANTITY:21 DF DOSAGE FORM;OTHER FREQUENCY:DAILY FOR 21 DAYS ;?
     Route: 048
     Dates: start: 20180919
  3. LETROZLE [Concomitant]
     Active Substance: LETROZOLE
  4. LISINOPRIL. [Concomitant]
     Active Substance: LISINOPRIL
  5. HCTZ [Concomitant]
     Active Substance: HYDROCHLOROTHIAZIDE
  6. CARVEDILOL. [Concomitant]
     Active Substance: CARVEDILOL
  7. LEVOTHYROXINE. [Concomitant]
     Active Substance: LEVOTHYROXINE

REACTIONS (2)
  - Blood creatinine increased [None]
  - Hyperuricaemia [None]

NARRATIVE: CASE EVENT DATE: 20181018
